FAERS Safety Report 17952963 (Version 1)
Quarter: 2020Q2

REPORT INFORMATION
  Report Type: Report from Study
  Country: MX (occurrence: MX)
  Receive Date: 20200627
  Receipt Date: 20200627
  Transmission Date: 20200714
  Serious: Yes (Other)
  Sender: FDA-Public Use
  Company Number: MX-UCBSA-2020008382

PATIENT
  Age: 85 Year
  Sex: Female
  Weight: 52 kg

DRUGS (18)
  1. ROTIGOTINE [Suspect]
     Active Substance: ROTIGOTINE
     Dosage: 4 MILLIGRAM, ONCE DAILY (QD)
     Route: 062
     Dates: start: 2017
  2. VIGAMOXI [Concomitant]
     Active Substance: MOXIFLOXACIN
     Indication: CORNEAL DISORDER
     Dosage: UNK
  3. ROTIGOTINE [Suspect]
     Active Substance: ROTIGOTINE
     Indication: PARKINSON^S DISEASE
     Dosage: 2 MILLIGRAM, ONCE DAILY (QD)
     Route: 062
  4. ROTIGOTINE [Suspect]
     Active Substance: ROTIGOTINE
     Dosage: 6 MILLIGRAM, ONCE DAILY (QD)
     Route: 062
  5. CARBIDOPA AND LEVODOPA [Concomitant]
     Active Substance: CARBIDOPA\LEVODOPA
     Indication: PARKINSON^S DISEASE
     Dosage: UNK
     Route: 048
  6. LODESTAR [Concomitant]
     Indication: HYPERTENSION
     Dosage: UNK
  7. HYDROCHLOROTHIAZIDE. [Concomitant]
     Active Substance: HYDROCHLOROTHIAZIDE
     Indication: HYPERTENSION
     Dosage: UNK
     Route: 048
  8. LOTEREX [Concomitant]
     Active Substance: LOTEPREDNOL ETABONATE
     Indication: CORNEAL DISORDER
     Dosage: UNK
  9. TRAXITEN [Concomitant]
     Indication: CORNEAL DISORDER
     Dosage: UNK
  10. AMLODIPINE [Concomitant]
     Active Substance: AMLODIPINE BESYLATE
     Indication: HYPERTENSION
     Dosage: UNK
  11. LAGRICEL [Concomitant]
     Active Substance: HYALURONATE SODIUM
     Indication: DRY EYE
     Dosage: UNK
  12. ROTIGOTINE [Suspect]
     Active Substance: ROTIGOTINE
     Dosage: 8 MILLIGRAM, ONCE DAILY (QD)
     Route: 062
     Dates: start: 20200217
  13. FLUOXAC [Concomitant]
     Indication: DEPRESSION
     Route: 048
  14. XARELTO [Concomitant]
     Active Substance: RIVAROXABAN
     Indication: THROMBOSIS
     Dosage: UNK
  15. CORNEREGEL [Concomitant]
     Active Substance: DEXPANTHENOL
     Indication: CORNEAL DISORDER
     Dosage: UNK
  16. QUESTRAN [Concomitant]
     Active Substance: CHOLESTYRAMINE
     Indication: INTESTINAL OPERATION
     Dosage: UNK
  17. OTEDRAM [Concomitant]
     Indication: ANXIETY
     Dosage: UNK
     Route: 048
  18. MODUSIK-A OFTENO [Concomitant]
     Indication: CORNEAL DISORDER
     Dosage: UNK

REACTIONS (14)
  - Abdominal pain upper [Recovered/Resolved]
  - Hypertension [Recovered/Resolved]
  - Cough [Recovered/Resolved]
  - Fall [Unknown]
  - Adverse reaction [Not Recovered/Not Resolved]
  - Vomiting [Recovered/Resolved]
  - Thrombosis [Not Recovered/Not Resolved]
  - Insomnia [Unknown]
  - Malaise [Unknown]
  - Arrhythmia [Not Recovered/Not Resolved]
  - Asthenia [Unknown]
  - Intentional product misuse [Unknown]
  - Salivary hypersecretion [Recovered/Resolved]
  - Diarrhoea [Unknown]

NARRATIVE: CASE EVENT DATE: 2017
